FAERS Safety Report 7985843-X (Version None)
Quarter: 2011Q4

REPORT INFORMATION
  Report Type: 
  Country: None (occurrence: None)
  Receive Date: 20111216
  Receipt Date: 20111213
  Transmission Date: 20120403
  Serious: Yes (Hospitalization, Other)
  Sender: FDA-Public Use
  Company Number: CA-PFIZER INC-2011247707

PATIENT
  Age: 53 Year
  Sex: Male

DRUGS (6)
  1. COGENTIN [Concomitant]
     Dosage: UNK
  2. LOXAPINE [Interacting]
     Indication: SCHIZOPHRENIA
     Dosage: 50 MG, 1X/DAY
     Route: 048
     Dates: start: 19860101, end: 20110101
  3. LOXAPINE [Interacting]
     Indication: DELUSION
     Dosage: 75 MG, UNK
     Dates: start: 20110101
  4. ZANTAC [Concomitant]
     Dosage: UNK
  5. ZIPRASIDONE HYDROCHLORIDE [Suspect]
     Indication: PSYCHOTIC DISORDER
     Dosage: 75 MG, 1X/DAY
     Route: 048
     Dates: start: 20110301, end: 20110401
  6. CELEXA [Concomitant]
     Dosage: UNK

REACTIONS (10)
  - PAIN [None]
  - SELF ESTEEM INFLATED [None]
  - ANGER [None]
  - DISTURBANCE IN ATTENTION [None]
  - DRUG INTERACTION [None]
  - ABNORMAL BEHAVIOUR [None]
  - OBSESSIVE THOUGHTS [None]
  - AGITATION [None]
  - GUN SHOT WOUND [None]
  - JOINT DISLOCATION [None]
